FAERS Safety Report 7150296-0 (Version None)
Quarter: 2010Q4

REPORT INFORMATION
  Report Type: 
  Country: None (occurrence: None)
  Receive Date: 20101123
  Receipt Date: 20101110
  Transmission Date: 20110411
  Serious: Yes (Hospitalization)
  Sender: FDA-Public Use
  Company Number: 021803

PATIENT
  Sex: Female

DRUGS (1)
  1. CIMZIA [Suspect]
     Dosage: (SUBCUTANEOUS)
     Route: 058
     Dates: start: 20091015

REACTIONS (4)
  - ABDOMINAL PAIN [None]
  - BODY TEMPERATURE INCREASED [None]
  - DIARRHOEA [None]
  - INTESTINAL MUCOSAL HYPERTROPHY [None]
